FAERS Safety Report 8524025-X (Version None)
Quarter: 2012Q3

REPORT INFORMATION
  Report Type: 
  Country: None (occurrence: None)
  Receive Date: 20120720
  Receipt Date: 20120713
  Transmission Date: 20120928
  Serious: Yes (Life-Threatening, Other)
  Sender: FDA-Public Use
  Company Number: AT-SANOFI-AVENTIS-2012SA050113

PATIENT
  Age: 22 Year
  Sex: Female

DRUGS (1)
  1. FUROSEMIDE [Suspect]
     Route: 065

REACTIONS (13)
  - HYPONATRAEMIA [None]
  - BLOOD CREATINE PHOSPHOKINASE INCREASED [None]
  - METABOLIC ALKALOSIS [None]
  - HYPOKALAEMIA [None]
  - ELECTROCARDIOGRAM ST SEGMENT ABNORMAL [None]
  - RENAL IMPAIRMENT [None]
  - VOMITING [None]
  - DIARRHOEA [None]
  - DRUG ABUSE [None]
  - RHABDOMYOLYSIS [None]
  - MYALGIA [None]
  - ELECTROCARDIOGRAM ABNORMAL [None]
  - ELECTROCARDIOGRAM QT PROLONGED [None]
